FAERS Safety Report 7733818-8 (Version None)
Quarter: 2011Q3

REPORT INFORMATION
  Report Type: 
  Country: None (occurrence: None)
  Receive Date: 20110907
  Receipt Date: 20110905
  Transmission Date: 20111222
  Serious: Yes (Other)
  Sender: FDA-Public Use
  Company Number: PHHY2011SG61007

PATIENT
  Sex: Female
  Weight: 38.7 kg

DRUGS (1)
  1. ZOMETA [Suspect]
     Indication: OSTEOPOROSIS
     Dosage: 4 MG, UNK
     Route: 042
     Dates: start: 20110617

REACTIONS (6)
  - IMPAIRED WORK ABILITY [None]
  - PAIN [None]
  - PYREXIA [None]
  - BACK PAIN [None]
  - SLEEP DISORDER [None]
  - MYALGIA [None]
